FAERS Safety Report 9571911 (Version 3)
Quarter: 2013Q4

REPORT INFORMATION
  Report Type: Report from Study
  Country: CA (occurrence: CA)
  Receive Date: 20131001
  Receipt Date: 20131112
  Transmission Date: 20140711
  Serious: Yes (Other)
  Sender: FDA-Public Use
  Company Number: CA-ABBVIE-13P-028-1152276-00

PATIENT
  Sex: Female

DRUGS (3)
  1. HUMIRA [Suspect]
     Indication: RHEUMATOID ARTHRITIS
     Route: 058
     Dates: start: 20080820
  2. FENTANYL [Concomitant]
     Indication: NEOPLASM MALIGNANT
  3. UNSPECIFIED CONCOMITANT DRUG [Concomitant]
     Indication: PRODUCT USED FOR UNKNOWN INDICATION

REACTIONS (5)
  - Weight decreased [Unknown]
  - Intraductal proliferative breast lesion [Unknown]
  - Pain [Not Recovered/Not Resolved]
  - Intraductal proliferative breast lesion [Unknown]
  - Intraductal proliferative breast lesion [Unknown]
